FAERS Safety Report 7449968-X (Version None)
Quarter: 2011Q2

REPORT INFORMATION
  Report Type: 
  Country: None (occurrence: None)
  Receive Date: 20110502
  Receipt Date: 20110421
  Transmission Date: 20111010
  Serious: Yes (Hospitalization)
  Sender: FDA-Public Use
  Company Number: US-JNJFOC-20110410317

PATIENT
  Age: 58 Year
  Sex: Female
  Weight: 58.97 kg

DRUGS (8)
  1. SIMVASTATIN [Concomitant]
     Indication: BLOOD CHOLESTEROL INCREASED
     Route: 048
  2. PROZAC [Concomitant]
     Indication: DEPRESSION
     Route: 048
  3. TYLENOL-500 [Suspect]
     Indication: ARTHRITIS
     Route: 048
  4. TYLENOL PM [Suspect]
     Indication: SLEEP DISORDER THERAPY
     Route: 048
  5. ENABLEX [Concomitant]
     Indication: POLLAKIURIA
     Route: 048
  6. ALL OTHER THERAPEUTIC PRODUCTS [Concomitant]
     Indication: OSTEOPOROSIS
     Route: 048
  7. CLONIDINE [Concomitant]
     Indication: HYPERTENSION
     Route: 048
  8. TYLENOL-500 [Suspect]
     Route: 048

REACTIONS (10)
  - CONVULSION [None]
  - NEUROPATHY PERIPHERAL [None]
  - PRODUCT QUALITY ISSUE [None]
  - HYPERTENSION [None]
  - HEART RATE INCREASED [None]
  - HEPATIC CIRRHOSIS [None]
  - HEPATITIS C [None]
  - FALL [None]
  - ANAEMIA [None]
  - ASTHENIA [None]
